FAERS Safety Report 23460292 (Version 2)
Quarter: 2024Q1

REPORT INFORMATION
  Report Type: Spontaneous
  Country: US (occurrence: US)
  Receive Date: 20240131
  Receipt Date: 20240201
  Transmission Date: 20240410
  Serious: Yes (Hospitalization, Other)
  Sender: FDA-Public Use
  Company Number: US-BAXTER-2024BAX011575

PATIENT
  Age: 70 Year
  Sex: Female

DRUGS (3)
  1. VANCOMYCIN [Suspect]
     Active Substance: VANCOMYCIN
     Indication: Pneumonia
     Dosage: EIGHT DAY COURSE, ANTIBIOTIC THERAPY
     Route: 042
  2. CIPROFLOXACIN [Concomitant]
     Active Substance: CIPROFLOXACIN
     Indication: Pneumonia
     Dosage: EIGHT DAY COURSE, ANTIBIOTIC THERAPY
     Route: 042
  3. ZOSYN [Concomitant]
     Active Substance: PIPERACILLIN SODIUM\TAZOBACTAM SODIUM
     Indication: Pneumonia
     Dosage: EIGHT DAY COURSE, ANTIBIOTIC THERAPY
     Route: 042

REACTIONS (5)
  - Linear IgA disease [Recovering/Resolving]
  - Rash pruritic [Unknown]
  - Rash [Unknown]
  - Dermatitis bullous [Unknown]
  - Rash vesicular [Unknown]
